FAERS Safety Report 17536724 (Version 1)
Quarter: 2020Q1

REPORT INFORMATION
  Report Type: Spontaneous
  Country: DE (occurrence: DE)
  Receive Date: 20200313
  Receipt Date: 20200313
  Transmission Date: 20200409
  Serious: Yes (Hospitalization, Other)
  Sender: FDA-Public Use
  Company Number: DE-ABBVIE-20K-062-3312878-00

PATIENT
  Age: 59 Year
  Sex: Male

DRUGS (6)
  1. VENETOCLAX. [Suspect]
     Active Substance: VENETOCLAX
     Indication: CHRONIC LYMPHOCYTIC LEUKAEMIA
     Route: 048
     Dates: start: 201708, end: 201708
  2. VENETOCLAX. [Suspect]
     Active Substance: VENETOCLAX
     Route: 048
  3. RITUXIMAB. [Concomitant]
     Active Substance: RITUXIMAB
     Indication: CHRONIC LYMPHOCYTIC LEUKAEMIA
     Dates: start: 201708, end: 201708
  4. VENETOCLAX. [Suspect]
     Active Substance: VENETOCLAX
     Indication: GENE MUTATION
     Route: 048
     Dates: start: 201708
  5. CYCLOPHOSPHAMIDE. [Concomitant]
     Active Substance: CYCLOPHOSPHAMIDE
     Indication: PRODUCT USED FOR UNKNOWN INDICATION
  6. RITUXIMAB. [Concomitant]
     Active Substance: RITUXIMAB
     Indication: GENE MUTATION
     Dates: start: 201708

REACTIONS (25)
  - Neurological rehabilitation [Unknown]
  - Anorectal disorder [Unknown]
  - Weight decreased [Unknown]
  - Ileus paralytic [Unknown]
  - Abdominal lymphadenopathy [Unknown]
  - Night sweats [Unknown]
  - Intervertebral discitis [Unknown]
  - Urinary retention [Unknown]
  - Back pain [Unknown]
  - Richter^s syndrome [Unknown]
  - Large intestine perforation [Unknown]
  - Intestinal perforation [Unknown]
  - Aspergillus infection [Unknown]
  - Ascites [Unknown]
  - Stoma creation [Unknown]
  - Paraparesis [Unknown]
  - Malignant transformation [Unknown]
  - Infection [Unknown]
  - Pneumonia aspiration [Unknown]
  - Neurogenic bladder [Unknown]
  - Pyrexia [Unknown]
  - Constipation [Unknown]
  - Lymphoma [Unknown]
  - Enterococcal infection [Unknown]
  - Paraplegia [Unknown]

NARRATIVE: CASE EVENT DATE: 201708
